FAERS Safety Report 4366154-0 (Version None)
Quarter: 2004Q2

REPORT INFORMATION
  Report Type: 
  Country: None (occurrence: None)
  Receive Date: 20040526
  Receipt Date: 20040526
  Transmission Date: 20050107
  Serious: Yes (Other)
  Sender: FDA-Public Use
  Company Number: None

PATIENT
  Age: 18 Year
  Sex: Female
  Weight: 79.8331 kg

DRUGS (6)
  1. PROPOFOL [Suspect]
     Indication: SEDATION
     Dosage: TITRATED CONTINUOUS INTRAVENOUS
     Route: 042
     Dates: start: 20030625, end: 20030709
  2. CIPRO [Concomitant]
  3. FAMOTIDINE [Concomitant]
  4. METOCLOPRAMIDE [Concomitant]
  5. PIPERACILLIN/TAZOBACTAM [Concomitant]
  6. MIDAZOLAM HCL [Concomitant]

REACTIONS (2)
  - CONDITION AGGRAVATED [None]
  - VENTRICULAR EXTRASYSTOLES [None]
